FAERS Safety Report 6078809-0 (Version None)
Quarter: 2009Q1

REPORT INFORMATION
  Report Type: 
  Country: None (occurrence: None)
  Receive Date: 20090216
  Receipt Date: 20090114
  Transmission Date: 20090719
  Serious: No
  Sender: FDA-Public Use
  Company Number: US-BAYER-200910147BCC

PATIENT
  Age: 82 Year
  Sex: Male
  Weight: 92 kg

DRUGS (12)
  1. ALEVE [Suspect]
     Indication: ARTHRITIS
     Dosage: UNIT DOSE: 220 MG
     Dates: start: 20090113
  2. CARDIZEM [Concomitant]
  3. PLAVIX [Concomitant]
  4. SPIRONOLACTONE [Concomitant]
  5. FUROSEMIDE [Concomitant]
  6. ASPIRIN [Concomitant]
  7. ANTIVERT [Concomitant]
  8. COUMADIN [Concomitant]
  9. LIPITOR [Concomitant]
  10. AVODART [Concomitant]
  11. FLOMAX [Concomitant]
  12. PRIMIDONE [Concomitant]

REACTIONS (1)
  - HYPERTENSION [None]
